FAERS Safety Report 10009579 (Version 1)
Quarter: 2014Q1

REPORT INFORMATION
  Report Type: Spontaneous
  Country: US (occurrence: US)
  Receive Date: 20140312
  Receipt Date: 20140312
  Transmission Date: 20141002
  Serious: No
  Sender: FDA-Public Use
  Company Number: US-INCYTE CORPORATION-2012IN002045

PATIENT
  Age: 63 Year
  Sex: Male

DRUGS (5)
  1. JAKAFI [Suspect]
     Indication: MYELOFIBROSIS
     Dosage: 7.5 MG, BID
     Route: 048
     Dates: start: 201201, end: 20120904
  2. JAKAFI [Interacting]
     Dosage: 5 MG, BID
     Route: 048
     Dates: start: 20120905
  3. METHADONE [Concomitant]
     Dosage: 5 MG, BID
  4. REQUIP [Concomitant]
     Dosage: 0.5 MG, QHS
  5. VICODIN [Concomitant]
     Dosage: 10/325 MG (5 TABLETS QD)

REACTIONS (4)
  - Nausea [Unknown]
  - Hypersomnia [Unknown]
  - Blood count abnormal [Unknown]
  - Medication error [Recovered/Resolved]
